FAERS Safety Report 9751117 (Version 1)
Quarter: 2013Q4

REPORT INFORMATION
  Report Type: Spontaneous
  Country: GB (occurrence: GB)
  Receive Date: 20131212
  Receipt Date: 20131212
  Transmission Date: 20140711
  Serious: Yes (Death)
  Sender: FDA-Public Use
  Company Number: GB-TEVA-449760ISR

PATIENT
  Age: 34 Year
  Sex: Male

DRUGS (3)
  1. DIAZEPAM [Suspect]
     Indication: ANXIETY
     Dosage: 10 MG, UNKNOWN
     Route: 048
  2. ZYPREXA [Interacting]
     Indication: SCHIZOPHRENIA
     Dosage: 20 MG, UNK
     Route: 048
     Dates: start: 200808
  3. METHADONE [Interacting]

REACTIONS (3)
  - Sudden death [Fatal]
  - Sedation [Fatal]
  - Drug interaction [Unknown]
